FAERS Safety Report 25680420 (Version 2)
Quarter: 2025Q3

REPORT INFORMATION
  Report Type: Report from Study
  Country: CN (occurrence: CN)
  Receive Date: 20250814
  Receipt Date: 20250815
  Transmission Date: 20251021
  Serious: Yes (Other)
  Sender: ROCHE
  Company Number: CN-ROCHE-10000362308

PATIENT

DRUGS (1)
  1. ALECTINIB [Suspect]
     Active Substance: ALECTINIB
     Indication: Non-small cell lung cancer
     Dosage: 300 OR 600 MG
     Route: 065

REACTIONS (3)
  - Pneumonitis [Unknown]
  - Pulmonary fibrosis [Unknown]
  - Pneumonia [Unknown]
